FAERS Safety Report 23574808 (Version 1)
Quarter: 2024Q1

REPORT INFORMATION
  Report Type: Spontaneous
  Country: GB (occurrence: GB)
  Receive Date: 20240228
  Receipt Date: 20240228
  Transmission Date: 20240410
  Serious: Yes (Other)
  Sender: FDA-Public Use
  Company Number: GB-AMGEN-GBRSP2024036616

PATIENT
  Age: 83 Year
  Sex: Female

DRUGS (1)
  1. ARANESP [Suspect]
     Active Substance: DARBEPOETIN ALFA
     Indication: Product used for unknown indication
     Dosage: 30 MICROGRAM
     Route: 065

REACTIONS (8)
  - Choking [Unknown]
  - Hypoaesthesia [Unknown]
  - Parosmia [Unknown]
  - Dry mouth [Unknown]
  - Mass [Unknown]
  - Mouth ulceration [Unknown]
  - Off label use [Unknown]
  - Feeling hot [Unknown]

NARRATIVE: CASE EVENT DATE: 20240220
